FAERS Safety Report 5366284-0 (Version None)
Quarter: 2007Q2

REPORT INFORMATION
  Report Type: 
  Country: None (occurrence: None)
  Receive Date: 20070619
  Receipt Date: 20070619
  Transmission Date: 20071010
  Serious: Yes (Other)
  Sender: FDA-Public Use
  Company Number: None

PATIENT
  Age: 44 Year
  Sex: Male
  Weight: 90.7194 kg

DRUGS (1)
  1. JANUVIA [Suspect]
     Indication: DIABETES MELLITUS NON-INSULIN-DEPENDENT
     Dosage: 100 QD PO
     Route: 048
     Dates: start: 20070611, end: 20070614

REACTIONS (5)
  - BACK PAIN [None]
  - INFLUENZA LIKE ILLNESS [None]
  - MOVEMENT DISORDER [None]
  - PAIN IN EXTREMITY [None]
  - UPPER RESPIRATORY TRACT INFECTION [None]
